FAERS Safety Report 20636754 (Version 1)
Quarter: 2022Q1

REPORT INFORMATION
  Report Type: Spontaneous
  Country: US (occurrence: None)
  Receive Date: 20220324
  Receipt Date: 20220324
  Transmission Date: 20220423
  Serious: Yes (Hospitalization, Other)
  Sender: FDA-Public Use
  Company Number: None

PATIENT
  Age: 3 Day
  Sex: Female
  Weight: 3 kg

DRUGS (4)
  1. ARIPIPRAZOLE [Suspect]
     Active Substance: ARIPIPRAZOLE
     Indication: Schizoaffective disorder
  2. LURASIDONE [Suspect]
     Active Substance: LURASIDONE
     Indication: Schizoaffective disorder
  3. LAMOTRIGINE [Suspect]
     Active Substance: LAMOTRIGINE
     Indication: Schizoaffective disorder
  4. ZOLOFT [Concomitant]
     Active Substance: SERTRALINE HYDROCHLORIDE
     Indication: Nausea

REACTIONS (4)
  - Poor feeding infant [None]
  - Dehydration [None]
  - Hyperbilirubinaemia [None]
  - Foetal exposure during pregnancy [None]

NARRATIVE: CASE EVENT DATE: 20190829
